FAERS Safety Report 7239849-9 (Version None)
Quarter: 2011Q1

REPORT INFORMATION
  Report Type: 
  Country: None (occurrence: None)
  Receive Date: 20110122
  Receipt Date: 20101210
  Transmission Date: 20110831
  Serious: No
  Sender: FDA-Public Use
  Company Number: US-ALLERGAN-1016053US

PATIENT
  Age: 62 Year
  Sex: Female

DRUGS (4)
  1. CRESTOR [Concomitant]
  2. SYNTHROID [Concomitant]
  3. EVISTA                             /01303201/ [Concomitant]
  4. LATISSE [Suspect]
     Indication: GROWTH OF EYELASHES
     Dosage: 1 GTT, QHS
     Route: 061
     Dates: start: 20101101, end: 20101218

REACTIONS (1)
  - BLEPHAROPACHYNSIS [None]
